FAERS Safety Report 23637163 (Version 3)
Quarter: 2024Q2

REPORT INFORMATION
  Report Type: Report from Study
  Country: CA (occurrence: CA)
  Receive Date: 20240315
  Receipt Date: 20240529
  Transmission Date: 20240716
  Serious: Yes (Death, Life-Threatening)
  Sender: FDA-Public Use
  Company Number: CA-ABBVIE-5677051

PATIENT
  Age: 72 Year
  Sex: Female

DRUGS (1)
  1. RINVOQ [Suspect]
     Active Substance: UPADACITINIB
     Indication: Rheumatoid arthritis
     Dosage: FORM STRENGTH: 15 MILLIGRAM
     Route: 048
     Dates: start: 20221226, end: 202402

REACTIONS (6)
  - Death [Fatal]
  - Illness [Unknown]
  - Terminal state [Unknown]
  - Unevaluable event [Fatal]
  - Pain [Fatal]
  - Paralysis [Fatal]

NARRATIVE: CASE EVENT DATE: 20240101
